FAERS Safety Report 7787813-3 (Version None)
Quarter: 2011Q3

REPORT INFORMATION
  Report Type: 
  Country: None (occurrence: None)
  Receive Date: 20110930
  Receipt Date: 20110921
  Transmission Date: 20111222
  Serious: Yes (Hospitalization)
  Sender: FDA-Public Use
  Company Number: US-BIOGENIDEC-2011BI033951

PATIENT
  Age: 61 Year
  Sex: Female

DRUGS (12)
  1. ZOFRAN [Concomitant]
     Indication: NAUSEA
     Route: 048
  2. MYCOSTATIN [Concomitant]
  3. NORCO [Concomitant]
     Indication: PAIN
     Route: 048
  4. TYSABRI [Suspect]
     Indication: MULTIPLE SCLEROSIS
     Route: 042
     Dates: start: 20101215
  5. COENZYME Q10 [Concomitant]
  6. GLUCOSAMINE [Concomitant]
  7. MAGNESIUM OXIDE [Concomitant]
  8. DSS [Concomitant]
  9. SENNA [Concomitant]
     Route: 048
  10. AMLODIPINE [Concomitant]
     Route: 048
  11. THYROID TAB [Concomitant]
     Indication: HYPOTHYROIDISM
     Route: 048
  12. AMPYRA [Concomitant]
     Route: 048

REACTIONS (8)
  - ATRIOVENTRICULAR BLOCK SECOND DEGREE [None]
  - HYDRONEPHROSIS [None]
  - ANAEMIA [None]
  - NEPHROLITHIASIS [None]
  - RENAL FAILURE ACUTE [None]
  - SEPSIS [None]
  - RENAL ABSCESS [None]
  - KLEBSIELLA INFECTION [None]
